FAERS Safety Report 24620603 (Version 1)
Quarter: 2024Q4

REPORT INFORMATION
  Report Type: Spontaneous
  Country: PT (occurrence: PT)
  Receive Date: 20241114
  Receipt Date: 20241114
  Transmission Date: 20250115
  Serious: Yes (Other)
  Sender: FRESENIUS KABI
  Company Number: None

PATIENT
  Age: 57 Year
  Sex: Female
  Weight: 70 kg

DRUGS (2)
  1. TYENNE [Suspect]
     Active Substance: TOCILIZUMAB-AAZG
     Indication: Rheumatoid arthritis
     Dosage: 1 INJECTION SUBCUTANEOUS PER WEEK?FORM OF ADMIN: SOLUTION FOR INJECTION IN PRE-FILLED SYRINGE?ROUTE
     Dates: end: 20241013
  2. TYENNE [Suspect]
     Active Substance: TOCILIZUMAB-AAZG
     Indication: Rheumatoid arthritis
     Dosage: FORM OF ADMIN: SOLUTION FOR INJECTION IN PRE-FILLED PEN?ROUTE OF ADMIN: SUBCUTANEOUS
     Dates: start: 20240808, end: 20240808

REACTIONS (3)
  - Product substitution issue [Not Recovered/Not Resolved]
  - Administration site oedema [Not Recovered/Not Resolved]
  - Administration site pruritus [Not Recovered/Not Resolved]

NARRATIVE: CASE EVENT DATE: 20240808
